FAERS Safety Report 9214438 (Version 3)
Quarter: 2015Q1

REPORT INFORMATION
  Report Type: Spontaneous
  Country: US (occurrence: US)
  Receive Date: 20130405
  Receipt Date: 20150311
  Transmission Date: 20150721
  Serious: Yes (Other)
  Sender: FDA-Public Use
  Company Number: US-009507513-1304USA002504

PATIENT
  Sex: Male

DRUGS (1)
  1. PROPECIA [Suspect]
     Active Substance: FINASTERIDE
     Indication: ANDROGENETIC ALOPECIA
     Dosage: 1 MG, UNK
     Route: 048
     Dates: start: 2002, end: 20070110

REACTIONS (16)
  - Major depression [Not Recovered/Not Resolved]
  - Squamous cell carcinoma of skin [Unknown]
  - Cognitive disorder [Not Recovered/Not Resolved]
  - Respiratory tract infection viral [Unknown]
  - Alcoholism [Unknown]
  - Breast mass [Unknown]
  - Pharyngitis streptococcal [Unknown]
  - Libido decreased [Unknown]
  - Restless legs syndrome [Unknown]
  - Hyperlipidaemia [Unknown]
  - Sexual dysfunction [Not Recovered/Not Resolved]
  - Gynaecomastia [Unknown]
  - Laceration [Unknown]
  - Asthenia [Unknown]
  - Erectile dysfunction [Not Recovered/Not Resolved]
  - Muscle spasms [Unknown]

NARRATIVE: CASE EVENT DATE: 200303
